FAERS Safety Report 18051775 (Version 3)
Quarter: 2020Q3

REPORT INFORMATION
  Report Type: Spontaneous
  Country: US (occurrence: US)
  Receive Date: 20200721
  Receipt Date: 20200824
  Transmission Date: 20201103
  Serious: No
  Sender: FDA-Public Use
  Company Number: US-PFIZER INC-2020241284

PATIENT
  Age: 87 Year
  Sex: Female
  Weight: 47.63 kg

DRUGS (2)
  1. IBRANCE [Suspect]
     Active Substance: PALBOCICLIB
     Indication: BREAST CANCER METASTATIC
  2. IBRANCE [Suspect]
     Active Substance: PALBOCICLIB
     Indication: BREAST CANCER FEMALE
     Dosage: 125 MG, CYCLIC (ONCE A DAY FOR 21 DAYS AND OFF FOR 7 DAYS)
     Dates: start: 2020

REACTIONS (9)
  - Cerebral disorder [Unknown]
  - Neoplasm progression [Unknown]
  - Blister [Recovered/Resolved]
  - Radiation injury [Recovered/Resolved with Sequelae]
  - Ear disorder [Unknown]
  - Pruritus [Recovered/Resolved]
  - Product dose omission in error [Unknown]
  - Neuralgia [Recovering/Resolving]
  - Condition aggravated [Unknown]

NARRATIVE: CASE EVENT DATE: 2020
